FAERS Safety Report 4299898-X (Version None)
Quarter: 2004Q1

REPORT INFORMATION
  Report Type: 
  Country: None (occurrence: None)
  Receive Date: 20040219
  Receipt Date: 20040219
  Transmission Date: 20041129
  Serious: Yes (Hospitalization)
  Sender: FDA-Public Use
  Company Number: None

PATIENT
  Age: 76 Year
  Sex: Male
  Weight: 87.5442 kg

DRUGS (11)
  1. WARFARIN 2.5 [Suspect]
     Indication: ATRIAL FLUTTER
     Dosage: UTD
  2. DOXYCYCLINE [Suspect]
     Indication: CHRONIC OBSTRUCTIVE AIRWAYS DISEASE
     Dosage: 1 BID PO
     Route: 048
  3. DOXYCYCLINE [Suspect]
     Indication: PNEUMONIA
     Dosage: 1 BID PO
     Route: 048
  4. METOPROLOL [Concomitant]
  5. PREDNISONE [Concomitant]
  6. TERAZOSIN HCL [Concomitant]
  7. FINASTERIDE [Concomitant]
  8. FOSINOPRIL SODIUM [Concomitant]
  9. FUROSEMIDE [Concomitant]
  10. LEVOTHYROXINE SODIUM [Concomitant]
  11. WARFARIN SODIUM [Suspect]
     Indication: ATRIAL FLUTTER
     Dosage: UTD

REACTIONS (6)
  - DRUG INTERACTION [None]
  - DRUG LEVEL BELOW THERAPEUTIC [None]
  - DYSPNOEA [None]
  - PNEUMONIA [None]
  - PRODUCTIVE COUGH [None]
  - SPUTUM DISCOLOURED [None]
